FAERS Safety Report 5383973-2 (Version None)
Quarter: 2007Q3

REPORT INFORMATION
  Report Type: 
  Country: None (occurrence: None)
  Receive Date: 20070711
  Receipt Date: 20070629
  Transmission Date: 20080115
  Serious: Yes (Hospitalization)
  Sender: FDA-Public Use
  Company Number: AR-BRISTOL-MYERS SQUIBB COMPANY-13832027

PATIENT
  Age: 76 Year
  Sex: Female
  Weight: 97 kg

DRUGS (9)
  1. IRBESARTAN [Suspect]
     Indication: HYPERTENSION
     Dates: start: 20050319
  2. PLACEBO [Suspect]
     Indication: HYPERTENSION
     Dates: start: 20050319
  3. CLOPIDOGREL BISULFATE [Suspect]
     Indication: PROPHYLAXIS
     Dates: start: 20050319
  4. ASPIRIN [Suspect]
     Indication: PROPHYLAXIS
     Dates: start: 20050319
  5. ENALAPRIL [Concomitant]
  6. HYDROCHLOROTHIAZIDE [Concomitant]
  7. CARVEDILOL [Concomitant]
  8. RANITIDINE [Concomitant]
  9. LACTULONA [Concomitant]

REACTIONS (1)
  - INTESTINAL OBSTRUCTION [None]
